FAERS Safety Report 9812573 (Version 1)
Quarter: 2014Q1

REPORT INFORMATION
  Report Type: Spontaneous
  Country: FR (occurrence: FR)
  Receive Date: 20140113
  Receipt Date: 20140113
  Transmission Date: 20141002
  Serious: Yes (Hospitalization, Other)
  Sender: FDA-Public Use
  Company Number: FR-AMGEN-FRASP2014001158

PATIENT
  Age: 19 Year
  Sex: Male

DRUGS (2)
  1. ENBREL [Suspect]
     Indication: ANKYLOSING SPONDYLITIS
     Dosage: 50 MG, WEEKLY
     Route: 058
     Dates: start: 20131008, end: 20131120
  2. IBUPROFEN [Suspect]
     Indication: PRODUCT USED FOR UNKNOWN INDICATION
     Dosage: UNK
     Route: 048
     Dates: start: 20131120, end: 20131125

REACTIONS (5)
  - Stomatitis [Recovering/Resolving]
  - Conjunctivitis [Recovering/Resolving]
  - Mucosal erosion [Recovering/Resolving]
  - Reiter^s syndrome [Unknown]
  - Stevens-Johnson syndrome [Unknown]
